FAERS Safety Report 6901253-8 (Version None)
Quarter: 2010Q3

REPORT INFORMATION
  Report Type: 
  Country: None (occurrence: None)
  Receive Date: 20100803
  Receipt Date: 20100722
  Transmission Date: 20110219
  Serious: Yes (Other)
  Sender: FDA-Public Use
  Company Number: US-PFIZER INC-2010092790

PATIENT
  Sex: Male
  Weight: 82.993 kg

DRUGS (1)
  1. CHANTIX [Suspect]
     Indication: SMOKING CESSATION THERAPY
     Dosage: 0.5 MG, 2X/DAY
     Route: 048
     Dates: start: 20090227, end: 20090101

REACTIONS (5)
  - AGGRESSION [None]
  - MEMORY IMPAIRMENT [None]
  - MOOD SWINGS [None]
  - SUICIDAL IDEATION [None]
  - SUICIDE ATTEMPT [None]
